FAERS Safety Report 4474493-8 (Version None)
Quarter: 2004Q4

REPORT INFORMATION
  Report Type: 
  Country: None (occurrence: None)
  Receive Date: 20041014
  Receipt Date: 20041011
  Transmission Date: 20050328
  Serious: Yes (Hospitalization)
  Sender: FDA-Public Use
  Company Number: FR-SOLVAY-00204003666

PATIENT
  Age: 36 Year
  Sex: Female

DRUGS (1)
  1. 5-ASA (MANUFACTURER UNKNOWN) [Suspect]
     Indication: COLITIS ULCERATIVE
     Dosage: DAILY DOSE: 3 GRAM(S)
     Route: 048
     Dates: start: 20020101, end: 20020101

REACTIONS (9)
  - ABDOMINAL PAIN UPPER [None]
  - BLOOD AMYLASE INCREASED [None]
  - CUSHINGOID [None]
  - INCREASED APPETITE [None]
  - IRRITABILITY [None]
  - LIPASE INCREASED [None]
  - PANCREATITIS ACUTE [None]
  - THERAPEUTIC RESPONSE DECREASED [None]
  - WEIGHT INCREASED [None]
